FAERS Safety Report 6358972-4 (Version None)
Quarter: 2009Q3

REPORT INFORMATION
  Report Type: 
  Country: None (occurrence: None)
  Receive Date: 20090914
  Receipt Date: 20090828
  Transmission Date: 20100115
  Serious: Yes (Other)
  Sender: FDA-Public Use
  Company Number: 2009090409

PATIENT
  Age: 58 Year
  Sex: Male

DRUGS (15)
  1. ROCURONIUM (MANUFACTURER UNKNOWN) (ROCURONIUM) (ROCURONIUM) [Suspect]
     Indication: INDUCTION OF ANAESTHESIA
     Dosage: 35 MG
  2. SUFENTANIL (SUFENTANIL) (SUFENTANIL) [Concomitant]
  3. PROPOFOL [Concomitant]
  4. DESFLURANE (DESFLURANE) (DESFLURANE) [Concomitant]
  5. OXYGEN (OXYGEN) (OXYGEN) [Concomitant]
  6. KETAMINE (KETAMINE) (KETAMINE) [Concomitant]
  7. MAGNESIUM SULFATE (MAGNESIUM SULFATE) (MAGNESIUM SULFATE) [Concomitant]
  8. KETOROLAC (KETOROLAC) (KETOROLAC) [Concomitant]
  9. AMOXICILLIN [Concomitant]
  10. CLAVULANIC ACID (CLAVULANIC ACID) (CLAVULANIC ACID) [Concomitant]
  11. AMIKACIN [Concomitant]
  12. LITHIUM CARBONATE [Concomitant]
  13. VENLAFAXINE (VENLAFAXINE) (VENLAFAXINE) [Concomitant]
  14. CLOXAZOLAM (CLOXAZOLAM) (CLOXAZOLAM) [Concomitant]
  15. SODIUM VALPROATE (VALPROATE SODIUM) (VALPROATE SODIUM) [Concomitant]

REACTIONS (2)
  - DRUG INTERACTION [None]
  - NEUROMUSCULAR BLOCK PROLONGED [None]
